FAERS Safety Report 7812478-1 (Version None)
Quarter: 2011Q4

REPORT INFORMATION
  Report Type: 
  Country: None (occurrence: None)
  Receive Date: 20111013
  Receipt Date: 20111007
  Transmission Date: 20120403
  Serious: Yes (Hospitalization)
  Sender: FDA-Public Use
  Company Number: JP-ABBOTT-11P-087-0862120-00

PATIENT
  Age: 73 Year
  Sex: Female

DRUGS (6)
  1. CLARITHROMYCIN [Suspect]
     Indication: TINNITUS
     Dates: start: 20110908
  2. CLARITHROMYCIN [Suspect]
     Dates: start: 20110915
  3. CLARITHROMYCIN [Suspect]
     Dates: start: 20110926
  4. L-CARBOCISTEINE [Concomitant]
     Dates: start: 20110915
  5. L-CARBOCISTEINE [Concomitant]
     Dates: start: 20110926
  6. L-CARBOCISTEINE [Concomitant]
     Indication: TINNITUS
     Dates: start: 20110908

REACTIONS (4)
  - RASH GENERALISED [None]
  - PURPURA [None]
  - OCULAR HYPERAEMIA [None]
  - STOMATITIS [None]
